FAERS Safety Report 18800131 (Version 3)
Quarter: 2021Q2

REPORT INFORMATION
  Report Type: Spontaneous
  Country: US (occurrence: US)
  Receive Date: 20210128
  Receipt Date: 20210607
  Transmission Date: 20210717
  Serious: Yes (Hospitalization, Other)
  Sender: FDA-Public Use
  Company Number: US-NOVOPROD-782115

PATIENT
  Age: 69 Year
  Sex: Male

DRUGS (4)
  1. NOVOLOG MIX 70/30 [Suspect]
     Active Substance: INSULIN ASPART
     Indication: TYPE 2 DIABETES MELLITUS
     Dosage: 200 IU, QD (3 SHOTS A DAY)
     Route: 058
     Dates: start: 201503
  2. COVID?19 VACCINE NOS. [Suspect]
     Active Substance: COVID-19 VACCINE NOS
     Indication: PRODUCT USED FOR UNKNOWN INDICATION
     Dosage: FIRST DOSE
     Route: 065
  3. TRULICITY [Concomitant]
     Active Substance: DULAGLUTIDE
     Indication: TYPE 2 DIABETES MELLITUS
     Dosage: 1.5 MG
     Route: 065
  4. COVID?19 VACCINE NOS. [Suspect]
     Active Substance: COVID-19 VACCINE NOS
     Dosage: SECOND DOSE
     Route: 065
     Dates: start: 20210325

REACTIONS (9)
  - Malaise [Not Recovered/Not Resolved]
  - Vertigo [Unknown]
  - Illness [Unknown]
  - Dry age-related macular degeneration [Not Recovered/Not Resolved]
  - Neovascular age-related macular degeneration [Not Recovered/Not Resolved]
  - Chronic kidney disease [Not Recovered/Not Resolved]
  - Hyperhidrosis [Unknown]
  - Blindness [Not Recovered/Not Resolved]
  - Gait disturbance [Recovered/Resolved]

NARRATIVE: CASE EVENT DATE: 20201001
